FAERS Safety Report 11468030 (Version 2)
Quarter: 2015Q4

REPORT INFORMATION
  Report Type: Spontaneous
  Country: US (occurrence: US)
  Receive Date: 20150908
  Receipt Date: 20151016
  Transmission Date: 20160304
  Serious: Yes (Hospitalization, Other)
  Sender: FDA-Public Use
  Company Number: US-PFIZER INC-2015287020

PATIENT
  Age: 67 Year
  Sex: Female
  Weight: 63 kg

DRUGS (13)
  1. DILANTIN [Suspect]
     Active Substance: PHENYTOIN
     Indication: SEIZURE
     Dosage: 100MG CAPSULE BY MOUTH IN THE MORNING, 230MG CAPSULE BY MOUTH AT NIGHT
     Route: 048
  2. FOLIC ACID. [Concomitant]
     Active Substance: FOLIC ACID
     Indication: SEIZURE
     Dosage: 1 MG, 2X/DAY
     Route: 048
  3. CALCIUM PLUS VITAMIN D [Concomitant]
     Active Substance: CALCIUM\VITAMIN D
     Indication: ROUTINE HEALTH MAINTENANCE
     Dosage: 1 DF, 1X/DAY
     Route: 048
  4. ZYRTEC [Concomitant]
     Active Substance: CETIRIZINE HYDROCHLORIDE
     Indication: PRURITUS
     Dosage: 10 MG, 1X/DAY
     Route: 048
  5. ZYRTEC [Concomitant]
     Active Substance: CETIRIZINE HYDROCHLORIDE
     Indication: HYPERSENSITIVITY
  6. DILANTIN [Suspect]
     Active Substance: PHENYTOIN
     Dosage: 300 MG, ALTERNATE DAY (300 MG ONE DAY, 350 MG THE NEXT DAY)
  7. BENADRYL [Concomitant]
     Active Substance: DIPHENHYDRAMINE HYDROCHLORIDE
     Indication: HYPERSENSITIVITY
  8. BENADRYL [Concomitant]
     Active Substance: DIPHENHYDRAMINE HYDROCHLORIDE
     Indication: PRURITUS
     Dosage: 25 MG, 1X/DAY
     Route: 048
  9. MYSOLINE [Concomitant]
     Active Substance: PRIMIDONE
     Dosage: 500 MG, 1X/DAY
  10. DILANTIN [Suspect]
     Active Substance: PHENYTOIN
     Dosage: 350 MG, ALTERNATE DAY (300 MG ONE DAY, 350 MG THE NEXT DAY)
  11. WOMEN^S ONE A DAY [Concomitant]
     Indication: ROUTINE HEALTH MAINTENANCE
     Dosage: 1 DF, 1X/DAY
     Route: 048
  12. MYSOLINE [Concomitant]
     Active Substance: PRIMIDONE
     Indication: SEIZURE
     Dosage: 250 MG, 2X/DAY
     Route: 048
  13. FOLIC ACID. [Concomitant]
     Active Substance: FOLIC ACID
     Indication: WHITE BLOOD CELL COUNT ABNORMAL
     Dosage: 2 MG, 1X/DAY

REACTIONS (6)
  - Urticaria [Not Recovered/Not Resolved]
  - Drug ineffective [Unknown]
  - Skin disorder [Not Recovered/Not Resolved]
  - Pruritus [Not Recovered/Not Resolved]
  - Skin haemorrhage [Not Recovered/Not Resolved]
  - Disease recurrence [Not Recovered/Not Resolved]

NARRATIVE: CASE EVENT DATE: 201505
